FAERS Safety Report 5964748-X (Version None)
Quarter: 2008Q4

REPORT INFORMATION
  Report Type: 
  Country: None (occurrence: None)
  Receive Date: 20081125
  Receipt Date: 20081023
  Transmission Date: 20090506
  Serious: No
  Sender: FDA-Public Use
  Company Number: US-AMGEN-KDL314014

PATIENT
  Sex: Female
  Weight: 72.6 kg

DRUGS (4)
  1. ENBREL [Suspect]
     Indication: PSORIASIS
     Route: 058
     Dates: start: 20080805
  2. TYLENOL (CAPLET) [Concomitant]
  3. MOTRIN [Concomitant]
  4. VICODIN [Concomitant]

REACTIONS (7)
  - CELLULITIS [None]
  - GAIT DISTURBANCE [None]
  - HEPATIC ENZYME INCREASED [None]
  - NAUSEA [None]
  - PAIN IN EXTREMITY [None]
  - PSORIASIS [None]
  - PYREXIA [None]
